FAERS Safety Report 16122762 (Version 1)
Quarter: 2019Q1

REPORT INFORMATION
  Report Type: Other
  Country: CA (occurrence: CA)
  Receive Date: 20190327
  Receipt Date: 20190327
  Transmission Date: 20190418
  Serious: Yes (Hospitalization)
  Sender: FDA-Public Use
  Company Number: CA-APOTEX-2019AP009801

PATIENT
  Age: 45 Year
  Sex: Female

DRUGS (2)
  1. NUCALA [Suspect]
     Active Substance: MEPOLIZUMAB
     Indication: ASTHMA
     Dosage: 100 MG, UNK
     Route: 042
  2. SALBUTAMOL [Suspect]
     Active Substance: ALBUTEROL
     Indication: PRODUCT USED FOR UNKNOWN INDICATION
     Dosage: 4 DF, UNK
     Route: 065

REACTIONS (8)
  - Malaise [Unknown]
  - Heart rate increased [Unknown]
  - Asthma [Unknown]
  - Wheezing [Unknown]
  - Dyspnoea [Unknown]
  - Chest discomfort [Unknown]
  - Loss of personal independence in daily activities [Unknown]
  - Physical deconditioning [Unknown]
